FAERS Safety Report 25913879 (Version 1)
Quarter: 2025Q4

REPORT INFORMATION
  Report Type: Spontaneous
  Country: EU (occurrence: EU)
  Receive Date: 20251013
  Receipt Date: 20251013
  Transmission Date: 20260118
  Serious: Yes (Death)
  Sender: MYLAN
  Company Number: None

PATIENT
  Age: 17 Year
  Sex: Female
  Weight: 55 kg

DRUGS (12)
  1. ACETAMINOPHEN [Suspect]
     Active Substance: ACETAMINOPHEN
     Indication: Product used for unknown indication
     Dosage: 12 GRAM, TOTAL
     Dates: start: 20250925
  2. ACETAMINOPHEN [Suspect]
     Active Substance: ACETAMINOPHEN
     Dosage: 12 GRAM, TOTAL
     Route: 048
     Dates: start: 20250925
  3. ACETAMINOPHEN [Suspect]
     Active Substance: ACETAMINOPHEN
     Dosage: 12 GRAM, TOTAL
     Route: 048
     Dates: start: 20250925
  4. ACETAMINOPHEN [Suspect]
     Active Substance: ACETAMINOPHEN
     Dosage: 12 GRAM, TOTAL
     Dates: start: 20250925
  5. FLURBIPROFEN [Suspect]
     Active Substance: FLURBIPROFEN
     Indication: Product used for unknown indication
     Dosage: 5 DOSAGE FORM, TOTAL
     Dates: start: 20250925
  6. FLURBIPROFEN [Suspect]
     Active Substance: FLURBIPROFEN
     Dosage: 5 DOSAGE FORM, TOTAL
     Route: 048
     Dates: start: 20250925
  7. FLURBIPROFEN [Suspect]
     Active Substance: FLURBIPROFEN
     Dosage: 5 DOSAGE FORM, TOTAL
     Route: 048
     Dates: start: 20250925
  8. FLURBIPROFEN [Suspect]
     Active Substance: FLURBIPROFEN
     Dosage: 5 DOSAGE FORM, TOTAL
     Dates: start: 20250925
  9. ACUPAN [Suspect]
     Active Substance: NEFOPAM HYDROCHLORIDE
     Indication: Product used for unknown indication
     Dosage: 30 DOSAGE FORM, TOTAL
     Dates: start: 20250925
  10. ACUPAN [Suspect]
     Active Substance: NEFOPAM HYDROCHLORIDE
     Dosage: 30 DOSAGE FORM, TOTAL
     Route: 048
     Dates: start: 20250925
  11. ACUPAN [Suspect]
     Active Substance: NEFOPAM HYDROCHLORIDE
     Dosage: 30 DOSAGE FORM, TOTAL
     Route: 048
     Dates: start: 20250925
  12. ACUPAN [Suspect]
     Active Substance: NEFOPAM HYDROCHLORIDE
     Dosage: 30 DOSAGE FORM, TOTAL
     Dates: start: 20250925

REACTIONS (2)
  - Poisoning deliberate [Fatal]
  - Multiple organ dysfunction syndrome [Fatal]

NARRATIVE: CASE EVENT DATE: 20250925
